FAERS Safety Report 7966417-3 (Version None)
Quarter: 2011Q4

REPORT INFORMATION
  Report Type: 
  Country: None (occurrence: None)
  Receive Date: 20111208
  Receipt Date: 20111129
  Transmission Date: 20120403
  Serious: Yes (Hospitalization)
  Sender: FDA-Public Use
  Company Number: DE-ROCHE-1017637

PATIENT
  Sex: Female
  Weight: 68 kg

DRUGS (3)
  1. XELODA [Suspect]
     Indication: RECTAL CANCER
     Dosage: ON DAY1-33 W/O WEEKENDS PLUS OPTIONAL BOOST, LAST DOSE PRIRO TO EVENT: 26-JUL-2011
     Route: 048
     Dates: start: 20110628
  2. LISINOPRIL [Concomitant]
     Indication: HYPERTENSION
     Dosage: STARTED SINCE YEARS
     Route: 048
  3. OXALIPLATIN [Suspect]
     Indication: RECTAL CANCER
     Dosage: ON DAY1,8,15,22,29, LAST DOSE PRIRO TO EVENT: 26-JUL-2011
     Route: 042
     Dates: start: 20110628

REACTIONS (1)
  - ANASTOMOTIC COMPLICATION [None]
